FAERS Safety Report 21398514 (Version 3)
Quarter: 2023Q1

REPORT INFORMATION
  Report Type: Spontaneous
  Country: US (occurrence: US)
  Receive Date: 20220930
  Receipt Date: 20230126
  Transmission Date: 20230418
  Serious: No
  Sender: FDA-Public Use
  Company Number: US-BIOGEN-2022BI01157515

PATIENT
  Age: 7 Year
  Sex: Male

DRUGS (1)
  1. SPINRAZA [Suspect]
     Active Substance: NUSINERSEN
     Indication: Spinal muscular atrophy
     Route: 050
     Dates: start: 20170217

REACTIONS (2)
  - Asthenia [Unknown]
  - Post lumbar puncture syndrome [Unknown]

NARRATIVE: CASE EVENT DATE: 20220922
